FAERS Safety Report 6391809-6 (Version None)
Quarter: 2009Q4

REPORT INFORMATION
  Report Type: 
  Country: None (occurrence: None)
  Receive Date: 20091007
  Receipt Date: 20090929
  Transmission Date: 20100525
  Serious: Yes (Other)
  Sender: FDA-Public Use
  Company Number: US-BAYER-200917522NA

PATIENT
  Age: 33 Year
  Sex: Female
  Weight: 83 kg

DRUGS (2)
  1. MIRENA [Suspect]
     Indication: DRUG USE FOR UNKNOWN INDICATION
     Dosage: CONTINUOUS DELIVERY
     Route: 015
     Dates: start: 20090409, end: 20090707
  2. SERTRALINE HCL [Concomitant]
     Indication: DEPRESSION
     Route: 048

REACTIONS (4)
  - DEVICE DISLOCATION [None]
  - MEDICAL DEVICE COMPLICATION [None]
  - PROCEDURAL PAIN [None]
  - SYNCOPE [None]
